FAERS Safety Report 23263284 (Version 1)
Quarter: 2023Q4

REPORT INFORMATION
  Report Type: Report from Study
  Country: HK (occurrence: None)
  Receive Date: 20231205
  Receipt Date: 20231205
  Transmission Date: 20240110
  Serious: Yes (Hospitalization)
  Sender: FDA-Public Use
  Company Number: 2023A266086

PATIENT
  Age: 86 Year
  Sex: Male
  Weight: 62.6 kg

DRUGS (1)
  1. CILGAVIMAB\TIXAGEVIMAB [Suspect]
     Active Substance: CILGAVIMAB\TIXAGEVIMAB
     Indication: COVID-19 prophylaxis
     Dosage: 600.0MG ONCE/SINGLE ADMINISTRATION
     Route: 030
     Dates: start: 20221122, end: 20221122

REACTIONS (1)
  - Spinal cord injury [Recovered/Resolved with Sequelae]

NARRATIVE: CASE EVENT DATE: 20230527
